FAERS Safety Report 8449920-1 (Version None)
Quarter: 2012Q2

REPORT INFORMATION
  Report Type: 
  Country: None (occurrence: None)
  Receive Date: 20120620
  Receipt Date: 20120613
  Transmission Date: 20120825
  Serious: Yes (Other)
  Sender: FDA-Public Use
  Company Number: PHHY2012CA038467

PATIENT
  Sex: Female

DRUGS (1)
  1. SANDOSTATIN LAR [Suspect]
     Indication: GASTRINOMA
     Dosage: 30 MG, QMO
     Route: 030
     Dates: start: 20110815

REACTIONS (9)
  - HUNGER [None]
  - ASTHENIA [None]
  - CRYING [None]
  - DEPRESSED MOOD [None]
  - NAUSEA [None]
  - GAIT DISTURBANCE [None]
  - EMOTIONAL DISTRESS [None]
  - FATIGUE [None]
  - VOMITING [None]
